FAERS Safety Report 8663456 (Version 6)
Quarter: 2012Q4

REPORT INFORMATION
  Report Type: 
  Country: DE (occurrence: NL)
  Receive Date: 20120713
  Receipt Date: 20121019
  Transmission Date: 20130627
  Serious: Yes (Hospitalization)
  Sender: FDA-Public Use
  Company Number: NL-GENZYME-CAMP-1002323

PATIENT
  Age: 54 Year
  Sex: Male
  Weight: 80 kg

DRUGS (6)
  1. CAMPATH [Suspect]
     Indication: T-CELL LYMPHOMA
     Dosage: 30 mg, 1xper cycle for 71 days
     Route: 058
     Dates: start: 20120229, end: 20120509
  2. CYCLOPHOSPHAMIDE [Suspect]
     Indication: T-CELL LYMPHOMA
     Dosage: 1520 mg, UNK, 1x per cycle for 106 days
     Route: 042
     Dates: start: 20120229, end: 20120613
  3. DOXORUBICIN [Suspect]
     Indication: T-CELL LYMPHOMA
     Dosage: 102 mg, UNK, 1x per cycle for 106 days
     Route: 042
     Dates: start: 20120229, end: 20120613
  4. VINCRISTINE [Suspect]
     Indication: T-CELL LYMPHOMA
     Dosage: 2 mg, UNK, 1x per cycle for 36 days
     Route: 042
     Dates: start: 20120229, end: 20120404
  5. PREDNISONE [Suspect]
     Indication: T-CELL LYMPHOMA
     Dosage: 100 mg, UNK, 5xper cycle for 110 days
     Route: 048
     Dates: start: 20120229, end: 20120617
  6. PEGFILGRASTIM [Suspect]
     Indication: T-CELL LYMPHOMA
     Dosage: 6 mg, UNK, 1xper cycle for 106 days
     Route: 058
     Dates: start: 20120303, end: 20120616

REACTIONS (4)
  - Small intestine ulcer [Not Recovered/Not Resolved]
  - Abdominal pain [Recovered/Resolved with Sequelae]
  - Febrile neutropenia [Unknown]
  - Weight decreased [Not Recovered/Not Resolved]
